FAERS Safety Report 9471759 (Version 5)
Quarter: 2017Q2

REPORT INFORMATION
  Report Type: Spontaneous
  Country: US (occurrence: US)
  Receive Date: 20130822
  Receipt Date: 20170526
  Transmission Date: 20170830
  Serious: Yes (Hospitalization)
  Sender: FDA-Public Use
  Company Number: US-GLAXOSMITHKLINE-A1038494A

PATIENT
  Age: 50 Year
  Sex: Female

DRUGS (7)
  1. FLOLAN [Suspect]
     Active Substance: EPOPROSTENOL SODIUM
     Dosage: 52 NG/KG/MIN, CONCENTRATION 60,000 NG/ML
     Route: 042
  2. FLOLAN [Suspect]
     Active Substance: EPOPROSTENOL SODIUM
     Dosage: 52 NG/KG/MIN, CONTINUOUS
     Route: 042
     Dates: start: 20060802
  3. FLOLAN [Suspect]
     Active Substance: EPOPROSTENOL SODIUM
     Dosage: 52 DF, CO
  4. COUMADIN [Concomitant]
     Active Substance: WARFARIN SODIUM
  5. FLOLAN [Suspect]
     Active Substance: EPOPROSTENOL SODIUM
     Indication: PULMONARY ARTERIAL HYPERTENSION
     Dosage: 52 NG/KG/MIN, CONCENTRATION 60,000 NG/ML, PUMP RATE 76 ML/DAY, VIAL STRENGTH 1.5 MG.
     Route: 042
     Dates: start: 20060802
  6. REVATIO [Concomitant]
     Active Substance: SILDENAFIL CITRATE
  7. FLOLAN [Suspect]
     Active Substance: EPOPROSTENOL SODIUM
     Indication: PULMONARY ARTERIAL HYPERTENSION

REACTIONS (10)
  - Device damage [Unknown]
  - Back pain [Unknown]
  - Bronchitis [Unknown]
  - Musculoskeletal discomfort [Unknown]
  - Cough [Unknown]
  - Urinary tract infection [Unknown]
  - Asthma [Unknown]
  - Pelvic discomfort [Unknown]
  - Device breakage [Unknown]
  - Dyspnoea [Unknown]

NARRATIVE: CASE EVENT DATE: 20151217
